FAERS Safety Report 4937790-5 (Version None)
Quarter: 2006Q1

REPORT INFORMATION
  Report Type: 
  Country: None (occurrence: None)
  Receive Date: 20060309
  Receipt Date: 20051114
  Transmission Date: 20060701
  Serious: Yes (Hospitalization)
  Sender: FDA-Public Use
  Company Number: US-MERCK-0511USA02233

PATIENT
  Age: 53 Year
  Sex: Female

DRUGS (1)
  1. VIOXX [Suspect]
     Route: 048
     Dates: start: 20010101, end: 20040701

REACTIONS (9)
  - ADVERSE EVENT [None]
  - DEEP VEIN THROMBOSIS [None]
  - FALL [None]
  - FIBULA FRACTURE [None]
  - MIGRAINE [None]
  - OSTEOPOROSIS [None]
  - PULMONARY EMBOLISM [None]
  - RESTLESS LEGS SYNDROME [None]
  - TIBIA FRACTURE [None]
